FAERS Safety Report 16994325 (Version 4)
Quarter: 2020Q1

REPORT INFORMATION
  Report Type: Spontaneous
  Country: JP (occurrence: JP)
  Receive Date: 20191105
  Receipt Date: 20200309
  Transmission Date: 20200409
  Serious: Yes (Hospitalization, Other)
  Sender: FDA-Public Use
  Company Number: JP-009507513-1910JPN004126J

PATIENT
  Age: 68 Year
  Sex: Male
  Weight: 55 kg

DRUGS (7)
  1. PITAVASTATIN CALCIUM [Concomitant]
     Active Substance: PITAVASTATIN CALCIUM
     Indication: HYPERLIPIDAEMIA
     Dosage: 1MG / DAY
     Route: 065
     Dates: start: 201609, end: 20191113
  2. EXCEGRAN [Concomitant]
     Active Substance: ZONISAMIDE
     Indication: EPILEPSY
     Dosage: 200MG
     Route: 065
     Dates: start: 20161019, end: 20191113
  3. JANUVIA [Concomitant]
     Active Substance: SITAGLIPTIN PHOSPHATE
     Indication: TYPE 2 DIABETES MELLITUS
     Dosage: 25MG/DAY
     Route: 048
     Dates: start: 20161019, end: 20191113
  4. ALEVIATIN [Concomitant]
     Active Substance: PHENYTOIN SODIUM
     Indication: EPILEPSY
     Dosage: 200MG/DAY
     Route: 065
     Dates: start: 20160921, end: 20161018
  5. AMLODIPINE [Concomitant]
     Active Substance: AMLODIPINE BESYLATE
     Indication: HYPERTENSION
     Dosage: 5 MILLIGRAM/DAY
     Route: 065
     Dates: start: 201609, end: 20191113
  6. E KEPPRA [Concomitant]
     Active Substance: LEVETIRACETAM
     Indication: EPILEPSY
     Dosage: 1000MG/DAY
     Route: 065
     Dates: start: 20180609, end: 20191113
  7. KEYTRUDA [Suspect]
     Active Substance: PEMBROLIZUMAB
     Indication: NON-SMALL CELL LUNG CANCER
     Dosage: 200 MILLIGRAM, Q3W
     Route: 041
     Dates: start: 20181120, end: 20181213

REACTIONS (4)
  - Malignant neoplasm progression [Unknown]
  - Hepatic function abnormal [Not Recovered/Not Resolved]
  - Parotitis [Recovering/Resolving]
  - Diarrhoea [Recovered/Resolved]

NARRATIVE: CASE EVENT DATE: 20181217
